FAERS Safety Report 8375876-6 (Version None)
Quarter: 2012Q2

REPORT INFORMATION
  Report Type: 
  Country: None (occurrence: None)
  Receive Date: 20120518
  Receipt Date: 20120507
  Transmission Date: 20120825
  Serious: Yes (Death, Other)
  Sender: FDA-Public Use
  Company Number: 2012P1023651

PATIENT
  Age: 21 Year
  Sex: Male
  Weight: 57 kg

DRUGS (3)
  1. HYDROMORPHONE HCL [Suspect]
     Indication: DEBRIDEMENT
     Dosage: 2 MG;X2;IV, 1 MG;X8;IV
     Route: 042
  2. ETHANOL (NO PREF. NAME) [Suspect]
     Indication: ALCOHOL USE
  3. OXYCONTIN [Suspect]
     Indication: DEBRIDEMENT
     Dosage: 10 MG

REACTIONS (2)
  - DRUG ADMINISTRATION ERROR [None]
  - BLOOD ALCOHOL INCREASED [None]
